FAERS Safety Report 8427353-1 (Version None)
Quarter: 2012Q2

REPORT INFORMATION
  Report Type: 
  Country: None (occurrence: None)
  Receive Date: 20120611
  Receipt Date: 20120607
  Transmission Date: 20120825
  Serious: Yes (Other)
  Sender: FDA-Public Use
  Company Number: US-PFIZER INC-2012138289

PATIENT

DRUGS (2)
  1. WELLBUTRIN [Concomitant]
     Indication: SMOKING CESSATION THERAPY
  2. CHANTIX [Suspect]
     Indication: SMOKING CESSATION THERAPY

REACTIONS (3)
  - GASTRITIS EROSIVE [None]
  - ELEVATED MOOD [None]
  - THERAPEUTIC RESPONSE UNEXPECTED [None]
